FAERS Safety Report 6503119-4 (Version None)
Quarter: 2009Q4

REPORT INFORMATION
  Report Type: 
  Country: None (occurrence: None)
  Receive Date: 20091217
  Receipt Date: 20091209
  Transmission Date: 20100525
  Serious: Yes (Other)
  Sender: FDA-Public Use
  Company Number: TW-ROCHE-673987

PATIENT
  Sex: Male

DRUGS (3)
  1. MIRCERA [Suspect]
     Route: 058
     Dates: start: 20091001
  2. RECORMON [Suspect]
     Route: 058
  3. ARANESP [Suspect]
     Route: 058
     Dates: end: 20091001

REACTIONS (1)
  - ANAEMIA [None]
